FAERS Safety Report 10609004 (Version 1)
Quarter: 2014Q4

REPORT INFORMATION
  Report Type: Spontaneous
  Country: CA (occurrence: CA)
  Receive Date: 20141125
  Receipt Date: 20141125
  Transmission Date: 20150529
  Serious: Yes (Hospitalization)
  Sender: FDA-Public Use
  Company Number: CA-ASTELLAS-2014US017771

PATIENT
  Age: 78 Year
  Sex: Male

DRUGS (1)
  1. VESICARE [Suspect]
     Active Substance: SOLIFENACIN SUCCINATE
     Indication: HYPERTONIC BLADDER
     Route: 048
     Dates: start: 20141025, end: 20141103

REACTIONS (3)
  - Pyrexia [Unknown]
  - Pain [Unknown]
  - Urinary retention [Unknown]

NARRATIVE: CASE EVENT DATE: 20141103
